FAERS Safety Report 8505186-5 (Version None)
Quarter: 2012Q3

REPORT INFORMATION
  Report Type: 
  Country: None (occurrence: None)
  Receive Date: 20120712
  Receipt Date: 20120710
  Transmission Date: 20120928
  Serious: Yes (Other)
  Sender: FDA-Public Use
  Company Number: US-PFIZER INC-2012165925

PATIENT
  Sex: Female
  Weight: 44.9 kg

DRUGS (7)
  1. NORVASC [Suspect]
     Dosage: 10 MG, 1X/DAY
     Route: 048
  2. ZANAFLEX [Concomitant]
     Dosage: UNK
  3. CALCIUM [Concomitant]
     Dosage: UNK
  4. NORVASC [Suspect]
     Indication: REYNOLD'S SYNDROME
     Dosage: 2.5 MG, 1X/DAY
     Route: 048
     Dates: start: 19960101
  5. AMLODIPINE BESYLATE [Suspect]
     Indication: REYNOLD'S SYNDROME
     Dosage: 10 MG, 1X/DAY
     Route: 048
  6. IRON [Concomitant]
     Dosage: UNK
  7. NORVASC [Suspect]
     Dosage: 5 MG, 1X/DAY
     Route: 048

REACTIONS (3)
  - COELIAC DISEASE [None]
  - SKIN LESION [None]
  - SKIN DISORDER [None]
